FAERS Safety Report 24405286 (Version 1)
Quarter: 2024Q4

REPORT INFORMATION
  Report Type: Spontaneous
  Country: US (occurrence: None)
  Receive Date: 20241007
  Receipt Date: 20241007
  Transmission Date: 20250115
  Serious: Yes (Life-Threatening)
  Sender: Public
  Company Number: None

PATIENT
  Age: 74 Year
  Sex: Male
  Weight: 77.11 kg

DRUGS (1)
  1. HYDROCHLOROTHIAZIDE\LOSARTAN [Suspect]
     Active Substance: HYDROCHLOROTHIAZIDE\LOSARTAN
     Indication: Hypertension
     Dosage: FREQUENCY : TWICE A DAY;?
     Route: 048
     Dates: start: 20240904, end: 20241001

REACTIONS (6)
  - Migraine [None]
  - Panic attack [None]
  - Anxiety [None]
  - Depression [None]
  - Nausea [None]
  - Self-injurious ideation [None]

NARRATIVE: CASE EVENT DATE: 20240929
